FAERS Safety Report 17780412 (Version 2)
Quarter: 2020Q2

REPORT INFORMATION
  Report Type: Spontaneous
  Country: IT (occurrence: IT)
  Receive Date: 20200513
  Receipt Date: 20200520
  Transmission Date: 20200714
  Serious: Yes (Hospitalization)
  Sender: FDA-Public Use
  Company Number: IT-VELOXIS PHARMACEUTICALS-2020VELIT-000454

PATIENT
  Age: 42 Year
  Sex: Female
  Weight: 62 kg

DRUGS (2)
  1. CLOZAPINE. [Suspect]
     Active Substance: CLOZAPINE
     Indication: SCHIZOPHRENIA
     Dosage: 450 MILLIGRAM, QD
     Route: 048
     Dates: start: 20180421, end: 20200423
  2. ENVARSUS XR [Suspect]
     Active Substance: TACROLIMUS
     Indication: PROPHYLAXIS AGAINST TRANSPLANT REJECTION
     Dosage: 1 DOSAGE FORM, QD
     Route: 048
     Dates: start: 20200201, end: 20200423

REACTIONS (3)
  - Drug level increased [Recovering/Resolving]
  - Sopor [Recovering/Resolving]
  - Drug interaction [Recovering/Resolving]

NARRATIVE: CASE EVENT DATE: 20200423
